FAERS Safety Report 10923766 (Version 1)
Quarter: 2015Q1

REPORT INFORMATION
  Report Type: Other
  Country: IT (occurrence: IT)
  Receive Date: 20150318
  Receipt Date: 20150318
  Transmission Date: 20150721
  Serious: Yes (Other)
  Sender: FDA-Public Use
  Company Number: IT-SUN PHARMACEUTICAL INDUSTRIES LTD-12SUNLE04P

PATIENT
  Sex: Female

DRUGS (1)
  1. LETROZOLE 2.5 MG FILMCOATED TABLETS [Suspect]
     Active Substance: LETROZOLE
     Indication: PRODUCT USED FOR UNKNOWN INDICATION
     Dosage: 2.5 MG, 1 DOSE
     Route: 065

REACTIONS (1)
  - Toxic skin eruption [Not Recovered/Not Resolved]
